FAERS Safety Report 11179736 (Version 1)
Quarter: 2015Q2

REPORT INFORMATION
  Report Type: Spontaneous
  Country: US (occurrence: None)
  Receive Date: 20150609
  Receipt Date: 20150609
  Transmission Date: 20150821
  Serious: Yes (Disabling, Other)
  Sender: FDA-Public Use
  Company Number: DEP_02989_2015

PATIENT
  Age: 46 Year
  Sex: Male
  Weight: 83.92 kg

DRUGS (6)
  1. HIV MEDICATIONS [Concomitant]
     Active Substance: UNSPECIFIED INGREDIENT
  2. VALACYCLOVIR [Concomitant]
     Active Substance: VALACYCLOVIR HYDROCHLORIDE
  3. ATIVAN [Concomitant]
     Active Substance: LORAZEPAM
  4. NORCO [Concomitant]
     Active Substance: ACETAMINOPHEN\HYDROCODONE BITARTRATE
  5. GRALISE [Suspect]
     Active Substance: GABAPENTIN
     Indication: MYALGIA
     Dosage: TITRATED UP TO 1500 MG ONCE DAILY
     Route: 048
     Dates: start: 20150521
  6. GRALISE [Suspect]
     Active Substance: GABAPENTIN
     Indication: OFF LABEL USE
     Dosage: TITRATED UP TO 1500 MG ONCE DAILY
     Route: 048
     Dates: start: 20150521

REACTIONS (3)
  - Fall [None]
  - Dyskinesia [None]
  - Gait disturbance [None]

NARRATIVE: CASE EVENT DATE: 201505
